FAERS Safety Report 7908191-2 (Version None)
Quarter: 2011Q4

REPORT INFORMATION
  Report Type: 
  Country: None (occurrence: None)
  Receive Date: 20111111
  Receipt Date: 20111101
  Transmission Date: 20120403
  Serious: No
  Sender: FDA-Public Use
  Company Number: US-BIOGENIDEC-2011BI042168

PATIENT
  Sex: Female

DRUGS (3)
  1. TYSABRI [Suspect]
     Indication: MULTIPLE SCLEROSIS
     Route: 042
     Dates: start: 20090717
  2. ACETAMINOPHEN [Concomitant]
     Indication: PREMEDICATION
  3. CLARITIN [Concomitant]
     Indication: PREMEDICATION

REACTIONS (20)
  - FEELING HOT [None]
  - VISUAL ACUITY REDUCED [None]
  - RASH GENERALISED [None]
  - FEELING COLD [None]
  - URTICARIA [None]
  - TOXICITY TO VARIOUS AGENTS [None]
  - MIGRAINE [None]
  - HEADACHE [None]
  - PRURITUS [None]
  - SKIN BURNING SENSATION [None]
  - VISUAL IMPAIRMENT [None]
  - PYREXIA [None]
  - HYPOTENSION [None]
  - FATIGUE [None]
  - PAIN OF SKIN [None]
  - SKIN ATROPHY [None]
  - ERYTHEMA [None]
  - EXTRAOCULAR MUSCLE PARESIS [None]
  - HYPERTENSION [None]
  - FLUSHING [None]
